FAERS Safety Report 20378991 (Version 1)
Quarter: 2022Q1

REPORT INFORMATION
  Report Type: Spontaneous
  Country: US (occurrence: None)
  Receive Date: 20220125
  Receipt Date: 20220125
  Transmission Date: 20220424
  Serious: Yes (Other)
  Sender: FDA-Public Use
  Company Number: None

PATIENT
  Age: 71 Year
  Sex: Male
  Weight: 85.5 kg

DRUGS (1)
  1. METOPROLOL SUCCINATE [Suspect]
     Active Substance: METOPROLOL SUCCINATE
     Dosage: FREQUENCY : DAILY;?
     Route: 048
     Dates: start: 20220105

REACTIONS (8)
  - Product physical issue [None]
  - Heart rate increased [None]
  - Blood pressure increased [None]
  - Dizziness [None]
  - Balance disorder [None]
  - Headache [None]
  - Product formulation issue [None]
  - Manufacturing materials issue [None]

NARRATIVE: CASE EVENT DATE: 20220124
